FAERS Safety Report 9426335 (Version 3)
Quarter: 2013Q3

REPORT INFORMATION
  Report Type: Spontaneous
  Country: US (occurrence: US)
  Receive Date: 20130730
  Receipt Date: 20130906
  Transmission Date: 20140515
  Serious: Yes (Other)
  Sender: FDA-Public Use
  Company Number: US-009507513-1307USA004240

PATIENT
  Age: 13 Year
  Sex: Female

DRUGS (2)
  1. NEXPLANON [Suspect]
     Indication: CONTRACEPTION
     Dosage: 68 MG/ ONE ROD, EVERY THREE YEARS
     Route: 059
  2. ANTIMICROBIAL (UNSPECIFIED) [Concomitant]

REACTIONS (2)
  - Wound dehiscence [Recovered/Resolved]
  - Injection site infection [Recovered/Resolved]
